FAERS Safety Report 10313432 (Version 15)
Quarter: 2015Q2

REPORT INFORMATION
  Report Type: Spontaneous
  Country: US (occurrence: None)
  Receive Date: 20140716
  Receipt Date: 20150521
  Transmission Date: 20150821
  Serious: Yes (Hospitalization, Other)
  Sender: FDA-Public Use
  Company Number: ADR-2014-01226

PATIENT
  Age: 41 Year
  Sex: Female

DRUGS (1)
  1. LIORESAL [Suspect]
     Active Substance: BACLOFEN
     Indication: MUSCLE SPASTICITY
     Dosage: 99.93 MCG/DAY; SEE B5

REACTIONS (23)
  - Implant site swelling [None]
  - Device dislocation [None]
  - Seizure [None]
  - Suture related complication [None]
  - Treatment noncompliance [None]
  - Medical device discomfort [None]
  - Device connection issue [None]
  - Somnolence [None]
  - Implant site reaction [None]
  - Condition aggravated [None]
  - Catheter site swelling [None]
  - Device inversion [None]
  - Gastrointestinal disorder [None]
  - Infectious colitis [None]
  - Device leakage [None]
  - Implant site extravasation [None]
  - Device damage [None]
  - Patient-device incompatibility [None]
  - Urticaria [None]
  - Device issue [None]
  - Post procedural complication [None]
  - Incision site complication [None]
  - Incision site oedema [None]

NARRATIVE: CASE EVENT DATE: 20140629
